FAERS Safety Report 10273157 (Version 1)
Quarter: 2014Q2

REPORT INFORMATION
  Report Type: Spontaneous
  Country: FR (occurrence: None)
  Receive Date: 20140630
  Receipt Date: 20140630
  Transmission Date: 20141212
  Serious: Yes (Hospitalization)
  Sender: FDA-Public Use
  Company Number: FK201402518

PATIENT
  Age: 86 Year
  Sex: Male

DRUGS (16)
  1. CEFTRIAXON [Suspect]
     Indication: URINARY TRACT INFECTION BACTERIAL
     Dates: start: 20140420, end: 20140520
  2. OFLOXACIN (OFLOXACIN) (OFLOXACIN) [Suspect]
     Indication: PRODUCT USED FOR UNKNOWN INDICATION
     Dates: start: 20140501, end: 20140518
  3. ZYLORIC (ALLOPURINOL) [Concomitant]
  4. AMLOR (AMLODIPINE BESILATE) [Concomitant]
  5. FINASTERIDE (FINASTERIDE) [Concomitant]
  6. FENOFIBRATE (FENOFIBRATE) (FENOFIBRATE) [Concomitant]
  7. NEBIVOLOL (NEBIVOLOL) (NEBIVOLOL) [Concomitant]
  8. DOLIPRANE (PARACETAMOL) [Concomitant]
  9. DIFFU K (POTASSIUM CHLORIDE) (POTASSIUM CHLORIDE) [Concomitant]
  10. CONTRAMAL (TRAMADOL HYDROCHLORIDE) [Concomitant]
  11. VALSARTAN (VALSARTAN) [Concomitant]
  12. EDUCTYL (EDUCTYL) [Concomitant]
  13. CERNEVIT (CERNEVIT /06027301/) [Concomitant]
  14. DECAN (DEXAMETHASONE) [Concomitant]
  15. PHOCYTAN (GLOCOSE 1-PHOSPHATE DISODIUM) [Concomitant]
  16. GENTAMICIN PANPHARMA (GENTAMICIN SULFATE) [Concomitant]

REACTIONS (4)
  - Hallucination [None]
  - Rash [None]
  - Blood creatinine increased [None]
  - Blood urea increased [None]
